FAERS Safety Report 7632644-8 (Version None)
Quarter: 2011Q3

REPORT INFORMATION
  Report Type: 
  Country: None (occurrence: None)
  Receive Date: 20110725
  Receipt Date: 20101105
  Transmission Date: 20111222
  Serious: No
  Sender: FDA-Public Use
  Company Number: US-BRISTOL-MYERS SQUIBB COMPANY-15372634

PATIENT
  Sex: Male

DRUGS (1)
  1. COUMADIN [Suspect]
     Dosage: PKG#:1-227INJ. 1DF = TAKEN 1 TAB IN MORNING AND 1 IN EVENING.

REACTIONS (1)
  - MEDICATION ERROR [None]
